FAERS Safety Report 16100196 (Version 4)
Quarter: 2020Q4

REPORT INFORMATION
  Report Type: Spontaneous
  Country: IT (occurrence: IT)
  Receive Date: 20190321
  Receipt Date: 20201125
  Transmission Date: 20210113
  Serious: Yes (Other)
  Sender: FDA-Public Use
  Company Number: IT-MYLANLABS-2008S1013789

PATIENT
  Age: 23 Year
  Sex: Male

DRUGS (13)
  1. MESALAZINE [Suspect]
     Active Substance: MESALAMINE
     Indication: COLITIS ULCERATIVE
     Dosage: 2.4 G,QD
     Route: 048
     Dates: start: 2006
  2. MESALAZINE [Suspect]
     Active Substance: MESALAMINE
     Dosage: 2.4 GRAMS DAILY
     Route: 048
     Dates: start: 200603, end: 200604
  3. MESALAZINE [Suspect]
     Active Substance: MESALAMINE
     Dosage: TOTAL DAILY DOSES
     Route: 048
     Dates: end: 200604
  4. MESALAZINE [Suspect]
     Active Substance: MESALAMINE
     Dosage: TOTAL DAILY DOSE
     Route: 048
     Dates: start: 200605
  5. MESALAMINE. [Concomitant]
     Active Substance: MESALAMINE
     Dosage: UNK
     Route: 054
     Dates: start: 200111
  6. MESALAMINE. [Concomitant]
     Active Substance: MESALAMINE
     Dosage: UNK
     Route: 054
     Dates: start: 200602, end: 200604
  7. MESALAZINE [Concomitant]
     Active Substance: MESALAMINE
     Indication: COLITIS ULCERATIVE
     Dosage: UNK
     Route: 054
     Dates: start: 200602, end: 200604
  8. MESALAMINE. [Concomitant]
     Active Substance: MESALAMINE
     Dosage: 2.4 GRAM, QD
  9. MESALAZINE [Concomitant]
     Active Substance: MESALAMINE
     Indication: PROCTITIS ULCERATIVE
     Dosage: UNK
     Route: 054
     Dates: start: 200111
  10. MESALAZINE [Suspect]
     Active Substance: MESALAMINE
     Indication: PROCTITIS ULCERATIVE
     Dosage: UNK
  11. MESALAZINE [Concomitant]
     Active Substance: MESALAMINE
     Dosage: UNK
     Route: 061
  12. MESALAZINE [Suspect]
     Active Substance: MESALAMINE
     Indication: COLITIS
     Dosage: 2.4 GRAMS DAILY
     Route: 048
     Dates: start: 200605, end: 200605
  13. MESALAMINE. [Concomitant]
     Active Substance: MESALAMINE
     Indication: COLITIS ULCERATIVE
     Dosage: UNK
     Route: 061

REACTIONS (5)
  - Pleurisy [Recovered/Resolved]
  - Pleural effusion [Recovered/Resolved]
  - Drug ineffective [Unknown]
  - Therapeutic product cross-reactivity [Recovered/Resolved]
  - Off label use [Unknown]

NARRATIVE: CASE EVENT DATE: 200602
